FAERS Safety Report 7154398-4 (Version None)
Quarter: 2010Q4

REPORT INFORMATION
  Report Type: 
  Country: None (occurrence: None)
  Receive Date: 20101213
  Receipt Date: 20101208
  Transmission Date: 20110411
  Serious: Yes (Death, Other)
  Sender: FDA-Public Use
  Company Number: US-US-EMD SERONO, INC.-233431J09USA

PATIENT
  Sex: Female
  Weight: 81 kg

DRUGS (39)
  1. REBIF [Suspect]
     Indication: MULTIPLE SCLEROSIS
     Route: 065
     Dates: start: 20030303
  2. REBIF [Suspect]
     Route: 065
     Dates: start: 20050101, end: 20060101
  3. TOPAMAX [Concomitant]
     Indication: PAIN
     Route: 048
     Dates: start: 20020801, end: 20030512
  4. TOPAMAX [Concomitant]
     Dates: start: 20030101, end: 20030101
  5. TOPAMAX [Concomitant]
     Dates: start: 20031006
  6. TOPAMAX [Concomitant]
     Dates: start: 20031205, end: 20041228
  7. HYDROCHLOROTHIAZIDE [Concomitant]
     Dates: end: 20041228
  8. PROTONIX [Concomitant]
     Dates: end: 20070101
  9. SYNTHROID [Concomitant]
     Indication: HYPOTHYROIDISM
     Route: 048
     Dates: end: 20070101
  10. ZOLOFT [Concomitant]
     Dates: end: 20070101
  11. MULTIVITAMIN WITH IRON [Concomitant]
     Route: 048
     Dates: end: 20070101
  12. ZONEGRAN [Concomitant]
     Dates: end: 20070101
  13. VIOXX [Concomitant]
     Dates: end: 20070101
  14. TOPROL-XL [Concomitant]
     Dates: end: 20070101
  15. FERROUS SULFATE [Concomitant]
     Indication: IRON DEFICIENCY ANAEMIA
     Route: 048
     Dates: start: 20021008
  16. FERROUS SULFATE [Concomitant]
     Route: 048
  17. PRILOSEC [Concomitant]
     Indication: GASTROOESOPHAGEAL REFLUX DISEASE
     Route: 048
     Dates: end: 20031001
  18. PROZAC [Concomitant]
     Indication: DEPRESSION
     Dates: end: 20010817
  19. PROZAC [Concomitant]
     Route: 048
  20. PROZAC [Concomitant]
     Route: 048
     Dates: end: 20030101
  21. PROZAC [Concomitant]
     Route: 048
     Dates: start: 20030101, end: 20030301
  22. PROZAC [Concomitant]
     Route: 048
     Dates: start: 20030311
  23. LEVOFLOXACIN [Concomitant]
     Route: 048
     Dates: start: 20040614
  24. LEVOFLOXACIN [Concomitant]
     Route: 048
     Dates: start: 20040802
  25. NEURONTIN [Concomitant]
     Dates: start: 20031110, end: 20040614
  26. POTASSIUM CHLORIDE [Concomitant]
     Route: 048
     Dates: start: 20041206
  27. ESTROGEN VAGINAL CREAM [Concomitant]
     Route: 067
  28. VALTREX [Concomitant]
     Indication: HERPES SIMPLEX
     Route: 048
     Dates: start: 20030303
  29. DULCOLAX [Concomitant]
     Indication: CONSTIPATION
     Dates: start: 20030101
  30. MILK OF MAGNESIA [Concomitant]
     Indication: CONSTIPATION
     Dates: start: 20030101
  31. SODIUM PHOSPHATES [Concomitant]
     Indication: CONSTIPATION
     Route: 054
     Dates: start: 20030303
  32. STEROID BURST [Concomitant]
     Dates: start: 20030101, end: 20030301
  33. TYLENOL EXTRA STRENGTH [Concomitant]
     Indication: HEADACHE
  34. TRAMADOL [Concomitant]
     Indication: PAIN
     Route: 048
  35. TRAMADOL [Concomitant]
     Indication: HEADACHE
     Route: 048
  36. OXYCONTIN [Concomitant]
     Indication: PAIN
     Dates: start: 20031006
  37. OXYCONTIN [Concomitant]
     Indication: HEADACHE
  38. MECLIZINE [Concomitant]
     Indication: DIZZINESS
  39. NEXIUM [Concomitant]
     Indication: GASTROOESOPHAGEAL REFLUX DISEASE
     Dates: start: 20031015

REACTIONS (9)
  - CENTRAL NERVOUS SYSTEM LESION [None]
  - CYTOMEGALOVIRUS TEST POSITIVE [None]
  - EPSTEIN-BARR VIRUS ANTIBODY POSITIVE [None]
  - GLIOMA [None]
  - HEPATITIS [None]
  - LIVER DISORDER [None]
  - RENAL DISORDER [None]
  - RHINITIS ALLERGIC [None]
  - URINARY INCONTINENCE [None]
